FAERS Safety Report 7959140-2 (Version None)
Quarter: 2011Q4

REPORT INFORMATION
  Report Type: 
  Country: None (occurrence: None)
  Receive Date: 20111206
  Receipt Date: 20111123
  Transmission Date: 20120403
  Serious: Yes (Hospitalization)
  Sender: FDA-Public Use
  Company Number: HU-ELI_LILLY_AND_COMPANY-HU201110006096

PATIENT
  Age: 44 Year
  Sex: Male

DRUGS (3)
  1. ZYPREXA [Suspect]
     Dosage: 10 MG, QD
     Route: 048
  2. LAMOTRIGINE [Concomitant]
     Dosage: 300 MG, QD
  3. OLANZAPINE [Suspect]
     Indication: SCHIZOPHRENIA
     Dosage: 300 MG, 2/M
     Route: 030
     Dates: start: 20110811, end: 20111007

REACTIONS (5)
  - INCOHERENT [None]
  - OVERDOSE [None]
  - AGITATION [None]
  - PSYCHOTIC DISORDER [None]
  - ANXIETY [None]
